FAERS Safety Report 24836568 (Version 1)
Quarter: 2025Q1

REPORT INFORMATION
  Report Type: Spontaneous
  Country: US (occurrence: US)
  Receive Date: 20250113
  Receipt Date: 20250113
  Transmission Date: 20250409
  Serious: Yes (Other)
  Sender: Haleon PLC
  Company Number: US-HALEON-2221100

PATIENT
  Age: 14 Year
  Sex: Female

DRUGS (4)
  1. IBUPROFEN [Suspect]
     Active Substance: IBUPROFEN
     Indication: Product used for unknown indication
  2. PIPERACILLIN AND TAZOBACTAM [Suspect]
     Active Substance: PIPERACILLIN SODIUM\TAZOBACTAM SODIUM
     Indication: Necrotising fasciitis
     Route: 042
  3. VANCOMYCIN [Suspect]
     Active Substance: VANCOMYCIN
     Indication: Necrotising fasciitis
     Route: 042
  4. CLINDAMYCIN [Suspect]
     Active Substance: CLINDAMYCIN
     Indication: Cellulitis staphylococcal
     Dosage: 720 MG (40 MG/KG/DAY DIVIDED EVERY 8 HOURS)

REACTIONS (5)
  - Nephropathy toxic [Recovering/Resolving]
  - Renal impairment [Recovering/Resolving]
  - Chromaturia [Recovering/Resolving]
  - Acute kidney injury [Recovering/Resolving]
  - Hypertension [Recovering/Resolving]
